FAERS Safety Report 7337875-2 (Version None)
Quarter: 2011Q1

REPORT INFORMATION
  Report Type: 
  Country: None (occurrence: None)
  Receive Date: 20110308
  Receipt Date: 20110228
  Transmission Date: 20110831
  Serious: Yes (Other)
  Sender: FDA-Public Use
  Company Number: DE-ROCHE-762391

PATIENT
  Age: 70 Year
  Sex: Female

DRUGS (2)
  1. LAPATINIB [Suspect]
     Route: 065
  2. CAPECITABINE [Suspect]
     Route: 048

REACTIONS (1)
  - ENOPHTHALMOS [None]
